FAERS Safety Report 6054914-X (Version None)
Quarter: 2009Q1

REPORT INFORMATION
  Report Type: 
  Country: None (occurrence: None)
  Receive Date: 20090123
  Receipt Date: 20090109
  Transmission Date: 20090719
  Serious: Yes (Hospitalization)
  Sender: FDA-Public Use
  Company Number: GXKR2009TR00585

PATIENT
  Age: 15 Year
  Sex: Female
  Weight: 37 kg

DRUGS (4)
  1. METHYLPREDNISOLONE 4MG TAB [Suspect]
     Indication: RHEUMATIC FEVER
     Dosage: 2 MG/KG
  2. BENZATHINE PENICILLIN G [Suspect]
  3. DIGOXIN [Concomitant]
  4. FUROSEMIDE [Concomitant]

REACTIONS (7)
  - DIABETIC KETOACIDOSIS [None]
  - DISEASE PROGRESSION [None]
  - DIZZINESS [None]
  - PALPITATIONS [None]
  - PRESYNCOPE [None]
  - SYNCOPE [None]
  - TREATMENT NONCOMPLIANCE [None]
